FAERS Safety Report 6332159-3 (Version None)
Quarter: 2009Q3

REPORT INFORMATION
  Report Type: 
  Country: None (occurrence: None)
  Receive Date: 20090828
  Receipt Date: 20090819
  Transmission Date: 20100115
  Serious: Yes (Other)
  Sender: FDA-Public Use
  Company Number: US-CELGENEUS-163-20785-09081685

PATIENT
  Sex: Female

DRUGS (2)
  1. THALOMID [Suspect]
     Indication: MULTIPLE MYELOMA
     Route: 048
     Dates: start: 20080501
  2. THALOMID [Suspect]
     Route: 048
     Dates: start: 20040301

REACTIONS (1)
  - CARDIAC AMYLOIDOSIS [None]
